FAERS Safety Report 17293577 (Version 1)
Quarter: 2020Q1

REPORT INFORMATION
  Report Type: Spontaneous
  Country: US (occurrence: US)
  Receive Date: 20200121
  Receipt Date: 20200121
  Transmission Date: 20200409
  Serious: Yes (Life-Threatening, Hospitalization, Other)
  Sender: FDA-Public Use
  Company Number: US-ALVOGEN-2020-ALVOGEN-102409

PATIENT
  Age: 63 Year
  Sex: Female

DRUGS (1)
  1. LISINOPRIL. [Suspect]
     Active Substance: LISINOPRIL
     Indication: PRODUCT USED FOR UNKNOWN INDICATION

REACTIONS (8)
  - Aspiration [Recovering/Resolving]
  - Pneumonia [Recovering/Resolving]
  - Unresponsive to stimuli [Recovering/Resolving]
  - Angioedema [Recovering/Resolving]
  - Hypoxia [Recovering/Resolving]
  - Haemoptysis [Recovering/Resolving]
  - Pulseless electrical activity [Recovering/Resolving]
  - Dyspnoea [Recovering/Resolving]
